FAERS Safety Report 4524920-2 (Version None)
Quarter: 2004Q4

REPORT INFORMATION
  Report Type: 
  Country: None (occurrence: None)
  Receive Date: 20041210
  Receipt Date: 20041124
  Transmission Date: 20050328
  Serious: Yes (Death)
  Sender: FDA-Public Use
  Company Number: 2004S1002762

PATIENT
  Age: 75 Year
  Sex: Male

DRUGS (5)
  1. CLOZAPINE [Suspect]
     Indication: PSYCHOTIC DISORDER
     Dosage: 37.5 MG QD AND 12.5 MG PRN AGITATION, ORAL
     Route: 048
     Dates: start: 20011107, end: 20040729
  2. CLOZAPINE [Suspect]
     Indication: SCHIZOPHRENIA
     Dosage: 37.5 MG QD AND 12.5 MG PRN AGITATION, ORAL
     Route: 048
     Dates: start: 20011107, end: 20040729
  3. LACTULOSE [Concomitant]
  4. NYSTATIN [Concomitant]
  5. CARBIDOPA AND LEVODOPA [Concomitant]

REACTIONS (2)
  - PARKINSON'S DISEASE [None]
  - PNEUMONIA [None]
